FAERS Safety Report 8443549-7 (Version None)
Quarter: 2012Q2

REPORT INFORMATION
  Report Type: 
  Country: None (occurrence: None)
  Receive Date: 20120618
  Receipt Date: 20120611
  Transmission Date: 20120825
  Serious: No
  Sender: FDA-Public Use
  Company Number: US-PFIZER INC-2012141269

PATIENT

DRUGS (6)
  1. CODEINE [Suspect]
     Dosage: UNK
  2. ASPIRIN [Suspect]
     Dosage: UNK
  3. FELDENE [Suspect]
     Dosage: UNK
  4. PENICILLIN G POTASSIUM [Suspect]
     Dosage: UNK
  5. TERAZOSIN HCL [Suspect]
     Dosage: UNK
  6. MUCINEX D [Suspect]
     Dosage: UNK

REACTIONS (1)
  - DRUG HYPERSENSITIVITY [None]
